FAERS Safety Report 8444986-7 (Version None)
Quarter: 2012Q2

REPORT INFORMATION
  Report Type: 
  Country: None (occurrence: None)
  Receive Date: 20120618
  Receipt Date: 20120606
  Transmission Date: 20120825
  Serious: Yes (Other)
  Sender: FDA-Public Use
  Company Number: US-ELI_LILLY_AND_COMPANY-US201004005513

PATIENT
  Sex: Female

DRUGS (20)
  1. CALTRATE                           /00751519/ [Concomitant]
     Dosage: UNK
  2. NITROGLYCERIN [Concomitant]
     Indication: ANGINA PECTORIS
     Dosage: UNK
  3. ASPIRIN [Concomitant]
     Dosage: 81 MG, DAILY (1/D)
     Dates: start: 19980101
  4. FORTEO [Suspect]
     Indication: OSTEOPOROSIS
     Dosage: 20 UG, QD
     Route: 058
     Dates: start: 20090929, end: 20110926
  5. FORTEO [Suspect]
     Dosage: 20 UG, QD
     Route: 058
     Dates: start: 20090929, end: 20110926
  6. FORTEO [Suspect]
     Dosage: 20 UG, QD
     Route: 058
     Dates: start: 20090929, end: 20110926
  7. VITAMIN D [Concomitant]
     Dosage: UNK
  8. FORTEO [Suspect]
     Dosage: 20 UG, QD
     Route: 058
     Dates: start: 20090929, end: 20110926
  9. LEVOTHYROXINE SODIUM [Concomitant]
     Dosage: 112 UG, DAILY (1/D)
  10. FORTEO [Suspect]
     Dosage: 20 UG, QD
     Route: 058
     Dates: start: 20120101
  11. XANAX [Concomitant]
     Dosage: 0.25 MG, DAILY (1/D)
  12. FLAXSEED OIL [Concomitant]
     Dosage: 1000 MG, DAILY (1/D)
  13. JANUVIA [Concomitant]
     Dosage: UNK
  14. FORTEO [Suspect]
     Dosage: 20 UG, QD
     Route: 058
     Dates: start: 20090929, end: 20110926
  15. FORTEO [Suspect]
     Dosage: 20 UG, QD
     Route: 058
     Dates: start: 20090929, end: 20110926
  16. FORTEO [Suspect]
     Dosage: 20 UG, QD
     Route: 058
     Dates: start: 20090929, end: 20110926
  17. LISINOPRIL [Concomitant]
     Dosage: 5 MG, DAILY (1/D)
  18. ACTOS [Concomitant]
     Dosage: 45 MG, DAILY (1/D)
  19. CRESTOR [Concomitant]
     Dosage: 10 MG, DAILY (1/D)
  20. CINNAMIN /00192601/ [Concomitant]
     Dosage: 500 MG, DAILY (1/D)

REACTIONS (27)
  - ARTHRALGIA [None]
  - ARTERIAL OCCLUSIVE DISEASE [None]
  - FALL [None]
  - ARTHRITIS [None]
  - PAIN IN EXTREMITY [None]
  - BALANCE DISORDER [None]
  - PAIN [None]
  - MUSCULOSKELETAL STIFFNESS [None]
  - GROIN PAIN [None]
  - LIGAMENT SPRAIN [None]
  - GAIT DISTURBANCE [None]
  - MOVEMENT DISORDER [None]
  - JOINT STIFFNESS [None]
  - JOINT CREPITATION [None]
  - NASOPHARYNGITIS [None]
  - MALAISE [None]
  - OSTEOARTHRITIS [None]
  - OEDEMA PERIPHERAL [None]
  - TENDON DISORDER [None]
  - RASH [None]
  - DIZZINESS [None]
  - CARDIAC FAILURE CONGESTIVE [None]
  - WEIGHT BEARING DIFFICULTY [None]
  - MEDICATION ERROR [None]
  - MYOCARDIAL INFARCTION [None]
  - VITAMIN D DECREASED [None]
  - WRIST FRACTURE [None]
